FAERS Safety Report 14109229 (Version 1)
Quarter: 2017Q4

REPORT INFORMATION
  Report Type: Report from Study
  Country: IN (occurrence: IN)
  Receive Date: 20171019
  Receipt Date: 20171019
  Transmission Date: 20180321
  Serious: Yes (Other)
  Sender: FDA-Public Use
  Company Number: IN-BAUSCH-BL-2017-029330

PATIENT

DRUGS (4)
  1. NORMAL SALINE [Suspect]
     Active Substance: SODIUM CHLORIDE
     Indication: PRODUCT USED FOR UNKNOWN INDICATION
     Dosage: GIVEN OVER 15 MIN
     Route: 064
  2. LEVOBUPIVACAINE [Concomitant]
     Active Substance: LEVOBUPIVACAINE
     Indication: ANALGESIC THERAPY
     Route: 064
  3. FENTANYL. [Concomitant]
     Active Substance: FENTANYL
     Indication: ANALGESIC THERAPY
     Dosage: 2 MICROG/ML
     Route: 064
  4. DEXAMETHASONE. [Suspect]
     Active Substance: DEXAMETHASONE
     Indication: ANALGESIC INTERVENTION SUPPORTIVE THERAPY
     Dosage: 8 MG IN 50 ML OF SALINE; GIVEN OVER 15 MIN
     Route: 064

REACTIONS (2)
  - Bradycardia foetal [Unknown]
  - Maternal drugs affecting foetus [Unknown]
